FAERS Safety Report 9167875 (Version 1)
Quarter: 2013Q1

REPORT INFORMATION
  Report Type: Spontaneous
  Country: US (occurrence: US)
  Receive Date: 20130318
  Receipt Date: 20130318
  Transmission Date: 20140127
  Serious: Yes (Other)
  Sender: FDA-Public Use
  Company Number: US-NOVOPROD-373098

PATIENT
  Age: 15 Year
  Sex: Male
  Weight: 40.82 kg

DRUGS (1)
  1. NORDITROPIN FLEXPRO 10 MG/ML [Suspect]
     Indication: BODY HEIGHT BELOW NORMAL
     Dosage: 2 MG DAILY
     Route: 058
     Dates: start: 20100519

REACTIONS (1)
  - Brain neoplasm benign [Unknown]
